FAERS Safety Report 7980668-3 (Version None)
Quarter: 2011Q4

REPORT INFORMATION
  Report Type: 
  Country: None (occurrence: None)
  Receive Date: 20111214
  Receipt Date: 20111207
  Transmission Date: 20120403
  Serious: No
  Sender: FDA-Public Use
  Company Number: US-B.I. PHARMACEUTICALS,INC./RIDGEFIELD-2011-BP-21034BP

PATIENT
  Sex: Male

DRUGS (21)
  1. LISINOPRIL [Concomitant]
     Indication: HYPERTENSION
     Route: 048
  2. LECITHIN [Concomitant]
  3. BETA PROSTATE [Concomitant]
  4. PRADAXA [Suspect]
     Indication: ATRIAL FIBRILLATION
     Dosage: 300 MG
     Route: 048
     Dates: start: 20101118, end: 20111024
  5. PRADAXA [Suspect]
     Indication: CEREBROVASCULAR ACCIDENT
  6. MULTI V+M [Concomitant]
  7. CMZ [Concomitant]
  8. METOPROLOL TARTRATE [Concomitant]
     Indication: HYPERTENSION
     Route: 048
  9. OXCARBAZEPINE [Concomitant]
     Indication: BIPOLAR DISORDER
     Route: 048
  10. HYDRALAZINE HCL [Concomitant]
     Indication: HYPERTENSION
     Route: 048
  11. OSTEO BI FLEX [Concomitant]
  12. POTASSIUM CHLORIDE [Concomitant]
  13. UNKNOWN MEDICATION FOR BIPOLAR DISORDER [Concomitant]
  14. RYTHMOL [Concomitant]
     Indication: CARDIAC DISORDER
     Route: 048
  15. METOPROLOL TARTRATE [Concomitant]
     Indication: ATRIAL FIBRILLATION
  16. HYDROCHLOROTHIAZIDE [Concomitant]
     Indication: HYPERTENSION
     Route: 048
  17. TRAMADOL HCL [Concomitant]
     Indication: OSTEOARTHRITIS
     Route: 048
  18. GARLIC [Concomitant]
  19. FISH OIL [Concomitant]
  20. PROPAFENONE HCL [Concomitant]
  21. LIPITOR [Concomitant]
     Indication: BLOOD CHOLESTEROL INCREASED
     Route: 048

REACTIONS (3)
  - LACERATION [None]
  - COAGULATION TIME SHORTENED [None]
  - BLOOD VISCOSITY INCREASED [None]
